FAERS Safety Report 4822939-5 (Version None)
Quarter: 2005Q4

REPORT INFORMATION
  Report Type: 
  Country: None (occurrence: None)
  Receive Date: 20051107
  Receipt Date: 20051107
  Transmission Date: 20060501
  Serious: Yes (Hospitalization)
  Sender: FDA-Public Use
  Company Number: None

PATIENT
  Age: 73 Year
  Sex: Male
  Weight: 70.7611 kg

DRUGS (1)
  1. GABITRIL [Suspect]
     Indication: NECK PAIN
     Dosage: X2  THEN  X4, THEN X8  PER DAY   PO
     Route: 048
     Dates: start: 20050810, end: 20051015

REACTIONS (2)
  - LOSS OF CONSCIOUSNESS [None]
  - SYNCOPE [None]
